FAERS Safety Report 10404466 (Version 1)
Quarter: 2014Q1

REPORT INFORMATION
  Report Type: Spontaneous
  Country: US (occurrence: None)
  Receive Date: 20140306
  Receipt Date: 20140306
  Transmission Date: 20141002
  Serious: Yes (Other)
  Sender: FDA-Public Use
  Company Number: 163-21880-12103809

PATIENT
  Age: 84 Year
  Sex: Female

DRUGS (9)
  1. REVLIMID (LENALIDOMIDE) (5 MILLIGRAM, CAPSULES) [Suspect]
     Indication: PLASMA CELL MYELOMA
     Dosage: 5 MG, 21 IN 28 D, PO
     Route: 048
     Dates: start: 20120210, end: 20130713
  2. COUMADIN (WARFARIN SODIUM) [Concomitant]
  3. FOSAMAX (ALENDRONATE SODIUM) [Concomitant]
  4. LEVOTHYROXINE [Concomitant]
  5. CALCIUM [Concomitant]
  6. VITAMIN C (ASCORBIC ACID) [Concomitant]
  7. ASPIRIN (ACETYLSALICYLIC ACID) [Concomitant]
  8. ZOCOR (SIMVASTATIN) [Concomitant]
  9. VITAMIN D (ERGOCALCIFEROL) [Concomitant]

REACTIONS (1)
  - Rectal haemorrhage [None]
